FAERS Safety Report 7714128-1 (Version None)
Quarter: 2011Q3

REPORT INFORMATION
  Report Type: 
  Country: None (occurrence: None)
  Receive Date: 20110829
  Receipt Date: 20110818
  Transmission Date: 20111222
  Serious: Yes (Hospitalization, Other)
  Sender: FDA-Public Use
  Company Number: GB-AMGEN-GBRSP2011042666

PATIENT
  Age: 66 Year
  Sex: Male

DRUGS (5)
  1. PREDNISOLONE [Concomitant]
     Dosage: UNK
  2. TRAMADOL HCL [Concomitant]
     Dosage: UNK
  3. ENBREL [Suspect]
     Indication: PRODUCT USED FOR UNKNOWN INDICATION
     Dosage: UNK
  4. OMEPRAZOLE [Concomitant]
     Dosage: 40 MG, UNK
  5. ACETAMINOPHEN [Concomitant]
     Dosage: UNK

REACTIONS (4)
  - SINUS BRADYCARDIA [None]
  - LOWER RESPIRATORY TRACT INFECTION [None]
  - CHEST PAIN [None]
  - DIVERTICULITIS [None]
